FAERS Safety Report 8544019-8 (Version None)
Quarter: 2012Q3

REPORT INFORMATION
  Report Type: 
  Country: None (occurrence: None)
  Receive Date: 20120727
  Receipt Date: 20120723
  Transmission Date: 20120928
  Serious: Yes (Other)
  Sender: FDA-Public Use
  Company Number: US-PFIZER INC-2012148454

PATIENT
  Sex: Female
  Weight: 91 kg

DRUGS (4)
  1. GLUCOPHAGE [Concomitant]
     Indication: TYPE 2 DIABETES MELLITUS
     Dosage: 2000 MG, 1X/DAY
  2. LYRICA [Suspect]
     Dosage: 75 MG, QHS
     Route: 048
     Dates: start: 20120627, end: 20120630
  3. NEURONTIN [Suspect]
     Indication: NEUROPATHY PERIPHERAL
     Dosage: 300 MG, 1X/DAY
     Dates: start: 19990101
  4. NEURONTIN [Suspect]
     Dosage: UNK

REACTIONS (8)
  - SOMNOLENCE [None]
  - PAIN IN EXTREMITY [None]
  - RHEUMATOID ARTHRITIS [None]
  - FIBROMYALGIA [None]
  - PSYCHOMOTOR HYPERACTIVITY [None]
  - DIZZINESS [None]
  - FATIGUE [None]
  - IMPAIRED WORK ABILITY [None]
